FAERS Safety Report 19829439 (Version 2)
Quarter: 2021Q3

REPORT INFORMATION
  Report Type: Report from Study
  Country: US (occurrence: US)
  Receive Date: 20210914
  Receipt Date: 20210930
  Transmission Date: 20211014
  Serious: No
  Sender: FDA-Public Use
  Company Number: NVSC2021US207595

PATIENT
  Sex: Female

DRUGS (2)
  1. TAFINLAR [Suspect]
     Active Substance: DABRAFENIB MESYLATE
     Indication: NON-SMALL CELL LUNG CANCER
     Dosage: 150 MG, BID
     Route: 048
     Dates: end: 20210928
  2. MEKINIST [Suspect]
     Active Substance: TRAMETINIB DIMETHYL SULFOXIDE
     Indication: NON-SMALL CELL LUNG CANCER
     Dosage: 2 MG, QD
     Route: 048
     Dates: end: 20210928

REACTIONS (8)
  - Feeding disorder [Unknown]
  - Vomiting projectile [Unknown]
  - Nausea [Unknown]
  - Hypersomnia [Unknown]
  - Diarrhoea [Unknown]
  - Epistaxis [Unknown]
  - Illness [Unknown]
  - Chills [Unknown]
